FAERS Safety Report 6534827-7 (Version None)
Quarter: 2010Q1

REPORT INFORMATION
  Report Type: 
  Country: None (occurrence: None)
  Receive Date: 20100112
  Receipt Date: 20091229
  Transmission Date: 20100710
  Serious: Yes (Disabling)
  Sender: FDA-Public Use
  Company Number: US-MYLANLABS-2009S1022040

PATIENT
  Age: 80 Year
  Sex: Male

DRUGS (4)
  1. WARFARIN [Suspect]
     Route: 065
  2. INSULIN [Concomitant]
     Route: 065
  3. DONEPEZIL HCL [Concomitant]
     Route: 065
  4. DILTIAZEM [Concomitant]
     Route: 065

REACTIONS (2)
  - RENAL FAILURE ACUTE [None]
  - RENAL TUBULAR NECROSIS [None]
